FAERS Safety Report 22532868 (Version 1)
Quarter: 2023Q2

REPORT INFORMATION
  Report Type: Spontaneous
  Country: KR (occurrence: KR)
  Receive Date: 20230607
  Receipt Date: 20230607
  Transmission Date: 20230722
  Serious: Yes (Hospitalization)
  Sender: FDA-Public Use
  Company Number: KR-MLMSERVICE-20190905-1937345-1

PATIENT
  Age: 82 Year
  Sex: Male

DRUGS (2)
  1. MOXIFLOXACIN [Suspect]
     Active Substance: MOXIFLOXACIN
     Indication: Infective spondylitis
     Dosage: UNK
     Route: 042
  2. CEFIXIME [Suspect]
     Active Substance: CEFIXIME
     Indication: Infective spondylitis
     Dosage: UNK
     Route: 042

REACTIONS (4)
  - Diarrhoea [Recovered/Resolved]
  - Inflammatory marker increased [Recovered/Resolved]
  - Abdominal pain [Recovered/Resolved]
  - Product use in unapproved indication [Unknown]
